FAERS Safety Report 10169303 (Version 1)
Quarter: 2014Q2

REPORT INFORMATION
  Report Type: Spontaneous
  Country: CO (occurrence: CO)
  Receive Date: 20140513
  Receipt Date: 20140513
  Transmission Date: 20141212
  Serious: Yes (Death)
  Sender: FDA-Public Use
  Company Number: CO-PFIZER INC-2014129488

PATIENT
  Sex: Female

DRUGS (1)
  1. INLYTA [Suspect]

REACTIONS (1)
  - Death [Fatal]
